FAERS Safety Report 13550556 (Version 1)
Quarter: 2017Q2

REPORT INFORMATION
  Report Type: Spontaneous
  Country: GB (occurrence: GB)
  Receive Date: 20170516
  Receipt Date: 20170516
  Transmission Date: 20170830
  Serious: Yes (Other)
  Sender: FDA-Public Use
  Company Number: GB-TEVA-766918ACC

PATIENT
  Age: 57 Year
  Sex: Male

DRUGS (3)
  1. DEXIMUNE [Suspect]
     Active Substance: CYCLOSPORINE
  2. PREDNISOLONE. [Suspect]
     Active Substance: PREDNISOLONE
  3. DEXIMUNE [Suspect]
     Active Substance: CYCLOSPORINE

REACTIONS (1)
  - Myocardial infarction [Unknown]
